FAERS Safety Report 21198575 (Version 1)
Quarter: 2022Q3

REPORT INFORMATION
  Report Type: Report from Study
  Country: DE (occurrence: DE)
  Receive Date: 20220811
  Receipt Date: 20220811
  Transmission Date: 20221027
  Serious: Yes (Death, Hospitalization, Other)
  Sender: FDA-Public Use
  Company Number: DE-EMA-DD-20180723-gdhingrap-171010

PATIENT
  Age: 57 Year
  Sex: Male

DRUGS (19)
  1. IPILIMUMAB [Suspect]
     Active Substance: IPILIMUMAB
     Indication: Malignant melanoma
     Dosage: 1/3 MG, Q3W
     Route: 065
     Dates: start: 20170719, end: 20170809
  2. NIVOLUMAB [Suspect]
     Active Substance: NIVOLUMAB
     Indication: Malignant melanoma
     Dosage: 3 MG/1 MG PER KG, Q3W (ALSO REPORTED 1/3 MG, Q3W)
     Route: 065
     Dates: start: 20170719, end: 20170809
  3. PEMBROLIZUMAB [Suspect]
     Active Substance: PEMBROLIZUMAB
     Indication: Malignant melanoma
     Dosage: 2 MG/KG, Q3W (21 DAYS)
     Route: 065
     Dates: start: 20160112, end: 20170613
  4. ETHOXAZORUTOSIDE\SODIUM ACETATE\SODIUM CHLORIDE\SORBITOL [Suspect]
     Active Substance: ETHOXAZORUTOSIDE\SODIUM ACETATE\SODIUM CHLORIDE\SORBITOL
     Indication: Product used for unknown indication
     Route: 065
  5. LISINOPRIL [Concomitant]
     Active Substance: LISINOPRIL
     Indication: Hypertension
     Dosage: 10 MG, QD
     Route: 065
  6. LISINOPRIL [Concomitant]
     Active Substance: LISINOPRIL
  7. LISINOPRIL [Concomitant]
     Active Substance: LISINOPRIL
     Dosage: 10 MG, QD
  8. LISINOPRIL [Concomitant]
     Active Substance: LISINOPRIL
     Dosage: 10 MG, QD
  9. LISINOPRIL [Concomitant]
     Active Substance: LISINOPRIL
  10. LISINOPRIL [Concomitant]
     Active Substance: LISINOPRIL
     Dosage: 10 MG, QD
  11. LISINOPRIL [Concomitant]
     Active Substance: LISINOPRIL
  12. LISINOPRIL [Concomitant]
     Active Substance: LISINOPRIL
  13. CALCIUM [Concomitant]
     Active Substance: CALCIUM
     Indication: Calcium deficiency
     Dosage: 500 MG, QD
  14. PREGABALIN [Concomitant]
     Active Substance: PREGABALIN
     Indication: Polyneuropathy
     Dosage: 75 MG, BID
     Route: 065
     Dates: start: 20170113
  15. BISOPROLOL [Concomitant]
     Active Substance: BISOPROLOL
     Indication: Hypertension
     Dosage: 5 MG, QD
     Route: 065
  16. PANTOZOL [Concomitant]
     Active Substance: PANTOPRAZOLE SODIUM
     Indication: Gastrooesophageal reflux disease
     Dosage: 40 MG, BID
     Route: 065
  17. ALLOPURINOL [Concomitant]
     Active Substance: ALLOPURINOL
     Indication: Hyperuricaemia
     Dosage: 100 MG, QD
     Route: 065
  18. NALOXONE HYDROCHLORIDE\TILIDINE HYDROCHLORIDE [Concomitant]
     Active Substance: NALOXONE HYDROCHLORIDE\TILIDINE HYDROCHLORIDE
     Indication: Analgesic therapy
     Dosage: 100/8 MG, BID (TOTAL DAILY DOSE: 200/16 MG)
     Route: 065
     Dates: start: 20170117
  19. MAGNESIUM [Concomitant]
     Active Substance: MAGNESIUM
     Indication: Magnesium deficiency
     Dosage: 100 MG, QD
     Route: 065
     Dates: start: 20170228

REACTIONS (7)
  - Diarrhoea [Recovered/Resolved]
  - Metastasis [Recovered/Resolved]
  - Malignant neoplasm progression [Fatal]
  - Acute kidney injury [Not Recovered/Not Resolved]
  - Hypokalaemia [Not Recovered/Not Resolved]
  - Hypotension [Not Recovered/Not Resolved]
  - General physical health deterioration [Unknown]

NARRATIVE: CASE EVENT DATE: 20170627
